APPROVED DRUG PRODUCT: DARIFENACIN HYDROBROMIDE
Active Ingredient: DARIFENACIN HYDROBROMIDE
Strength: EQ 7.5MG BASE
Dosage Form/Route: TABLET, EXTENDED RELEASE;ORAL
Application: A091190 | Product #001
Applicant: PH HEALTH LTD
Approved: Mar 13, 2015 | RLD: No | RS: No | Type: DISCN